FAERS Safety Report 6130124-2 (Version None)
Quarter: 2009Q1

REPORT INFORMATION
  Report Type: 
  Country: None (occurrence: None)
  Receive Date: 20090324
  Receipt Date: 20090324
  Transmission Date: 20090719
  Serious: Yes (Hospitalization)
  Sender: FDA-Public Use
  Company Number: PHHO2004BE00460

PATIENT
  Sex: Female
  Weight: 80 kg

DRUGS (1)
  1. TAMOXIFEN CITRATE [Suspect]
     Indication: BREAST CANCER
     Dosage: 20 MG, QD
     Route: 048
     Dates: start: 19990330

REACTIONS (5)
  - HIP ARTHROPLASTY [None]
  - HIP FRACTURE [None]
  - OSTEOPENIA [None]
  - OSTEOPOROSIS [None]
  - PAIN IN EXTREMITY [None]
